FAERS Safety Report 21919438 (Version 2)
Quarter: 2024Q3

REPORT INFORMATION
  Report Type: Spontaneous
  Country: US (occurrence: US)
  Receive Date: 20230127
  Receipt Date: 20240702
  Transmission Date: 20241017
  Serious: Yes (Hospitalization, Other)
  Sender: TAKEDA
  Company Number: US-TAKEDA-2023TUS007628

PATIENT
  Sex: Female
  Weight: 61 kg

DRUGS (26)
  1. NATPARA (PARATHYROID HORMONE) [Suspect]
     Active Substance: PARATHYROID HORMONE
     Indication: Post procedural hypoparathyroidism
     Dosage: 50 MICROGRAM, QD
     Route: 058
     Dates: start: 2019
  2. NATPARA (PARATHYROID HORMONE) [Suspect]
     Active Substance: PARATHYROID HORMONE
     Indication: Post procedural hypoparathyroidism
     Dosage: 50 MICROGRAM, QD
     Route: 058
     Dates: start: 2019
  3. NATPARA (PARATHYROID HORMONE) [Suspect]
     Active Substance: PARATHYROID HORMONE
     Indication: Post procedural hypoparathyroidism
     Dosage: 50 MICROGRAM, QD
     Route: 058
     Dates: start: 2019
  4. NATPARA (PARATHYROID HORMONE) [Suspect]
     Active Substance: PARATHYROID HORMONE
     Dosage: 50 MICROGRAM, QD
     Route: 058
  5. NATPARA (PARATHYROID HORMONE) [Suspect]
     Active Substance: PARATHYROID HORMONE
     Dosage: 50 MICROGRAM, QD
     Route: 058
  6. NATPARA (PARATHYROID HORMONE) [Suspect]
     Active Substance: PARATHYROID HORMONE
     Dosage: 50 MICROGRAM, QD
     Route: 058
  7. ERGOCALCIFEROL [Concomitant]
     Active Substance: ERGOCALCIFEROL
     Dosage: 50000 INTERNATIONAL UNIT, 1/WEEK
     Route: 065
  8. SYNTHROID [Concomitant]
     Active Substance: LEVOTHYROXINE SODIUM
     Dosage: 1 DOSAGE FORM, QD
     Route: 048
     Dates: start: 20240103
  9. ARAVA [Concomitant]
     Active Substance: LEFLUNOMIDE
     Indication: Rheumatoid arthritis
     Dosage: 1 DOSAGE FORM, QD
  10. PREDNISONE [Concomitant]
     Active Substance: PREDNISONE
     Indication: Rheumatoid arthritis
     Dosage: UNK UNK, QD
  11. METHOTREXATE [Concomitant]
     Active Substance: METHOTREXATE
     Indication: Rheumatoid arthritis
     Dosage: UNK UNK, 1/WEEK
  12. CALCIUM [Concomitant]
     Active Substance: CALCIUM
     Dosage: 4 DOSAGE FORM, QD
     Dates: start: 20240226
  13. CONCERTA [Concomitant]
     Active Substance: METHYLPHENIDATE HYDROCHLORIDE
     Dosage: 1 DOSAGE FORM, QD
     Route: 048
     Dates: start: 20240226
  14. ESTRADIOL [Concomitant]
     Active Substance: ESTRADIOL
     Dosage: 1 GRAM, 1/WEEK
     Route: 067
     Dates: start: 20240226
  15. MAGNESIUM OXIDE [Concomitant]
     Active Substance: MAGNESIUM OXIDE
     Indication: Post procedural hypoparathyroidism
     Dosage: 2 DOSAGE FORM, QD
     Route: 048
     Dates: start: 20230419
  16. MORPHINE [Concomitant]
     Active Substance: MORPHINE
     Dosage: 1 DOSAGE FORM, Q4HR
     Route: 048
     Dates: start: 20230419
  17. OXYCODONE [Concomitant]
     Active Substance: OXYCODONE
     Dosage: 1 DOSAGE FORM, Q4HR
     Route: 048
     Dates: start: 20230419
  18. OXYCODONE [Concomitant]
     Active Substance: OXYCODONE
     Dosage: 1 DOSAGE FORM, Q6HR
     Route: 048
  19. POTASSIUM CHLORIDE [Concomitant]
     Active Substance: POTASSIUM CHLORIDE
     Dosage: 1 DOSAGE FORM, QD
     Route: 048
     Dates: start: 20200311
  20. PROMETHAZINE [Concomitant]
     Active Substance: PROMETHAZINE HYDROCHLORIDE
     Dosage: 1 DOSAGE FORM, Q4HR
     Route: 048
     Dates: start: 20220519
  21. PROMETHAZINE [Concomitant]
     Active Substance: PROMETHAZINE HYDROCHLORIDE
     Dosage: 1 DOSAGE FORM, Q6HR
     Route: 048
     Dates: start: 20220519
  22. TERIPARATIDE [Concomitant]
     Active Substance: TERIPARATIDE
     Dosage: 0.08 MILLILITER, QD
     Route: 058
     Dates: start: 20240110
  23. VITAMIN D2 [Concomitant]
     Active Substance: ERGOCALCIFEROL
     Dosage: 1 DOSAGE FORM, 1/WEEK
     Route: 048
     Dates: start: 20240401
  24. GAMMAGARD S/D [Concomitant]
     Active Substance: HUMAN IMMUNOGLOBULIN G
     Indication: Immunodeficiency common variable
     Dosage: UNK
  25. IRON [Concomitant]
     Active Substance: IRON
     Dosage: UNK
  26. FORTEO [Concomitant]
     Active Substance: TERIPARATIDE
     Dosage: UNK
     Dates: start: 202301

REACTIONS (4)
  - Blood calcium decreased [Unknown]
  - Osteopenia [Unknown]
  - Muscle spasms [Unknown]
  - Paraesthesia [Unknown]
